FAERS Safety Report 14638672 (Version 2)
Quarter: 2019Q4

REPORT INFORMATION
  Report Type: Report from Study
  Country: US (occurrence: US)
  Receive Date: 20180314
  Receipt Date: 20191213
  Transmission Date: 20200122
  Serious: Yes (Other)
  Sender: FDA-Public Use
  Company Number: US-ROCHE-1940814

PATIENT
  Sex: Female
  Weight: 67.65 kg

DRUGS (3)
  1. RITUXAN [Suspect]
     Active Substance: RITUXIMAB
     Indication: MULTIPLE SCLEROSIS
     Dosage: DAY 1 AND DAY 15
     Route: 042
     Dates: start: 20170517
  2. PREDNISONE. [Concomitant]
     Active Substance: PREDNISONE
     Dosage: ONGOING: NO
     Route: 065
  3. RITUXAN [Suspect]
     Active Substance: RITUXIMAB
     Dosage: SUBSEQUENT INFUSIONS ON: 15/AUG/2019; 29/AUG/2019
     Route: 042

REACTIONS (6)
  - Intentional product use issue [Unknown]
  - Fatigue [Unknown]
  - Rib fracture [Recovered/Resolved]
  - Fall [Unknown]
  - Off label use [Unknown]
  - Therapeutic product effect decreased [Unknown]
